FAERS Safety Report 7549080-5 (Version None)
Quarter: 2011Q2

REPORT INFORMATION
  Report Type: 
  Country: None (occurrence: None)
  Receive Date: 20110615
  Receipt Date: 20110613
  Transmission Date: 20111010
  Serious: Yes (Other)
  Sender: FDA-Public Use
  Company Number: US-TEVA-285986USA

PATIENT
  Sex: Male

DRUGS (12)
  1. IRBESARTAN [Concomitant]
     Dates: start: 19960101
  2. ATENOLOL [Concomitant]
     Dates: start: 19960101
  3. VICODIN [Concomitant]
     Dates: start: 20100201
  4. ATORVASTATIN CALCIUM [Concomitant]
     Dates: start: 20070827
  5. PREDNISONE [Concomitant]
     Dates: start: 20060314
  6. MULTI-VITAMINS [Concomitant]
  7. ABATACEPT [Suspect]
     Indication: RHEUMATOID ARTHRITIS
     Route: 058
     Dates: start: 20070323
  8. OMEPRAZOLE [Concomitant]
     Dates: start: 20061206
  9. WARFARIN SODIUM [Concomitant]
     Dates: start: 20080515
  10. SYSTANE                            /02034401/ [Concomitant]
     Dates: start: 20071001
  11. METHOTREXATE [Suspect]
     Dosage: 1.7857 MILLIGRAM;
     Dates: start: 20060913
  12. ACETAMINOPHEN [Concomitant]
     Dates: start: 20080428

REACTIONS (3)
  - SQUAMOUS CELL CARCINOMA [None]
  - RECURRENT CANCER [None]
  - BASAL CELL CARCINOMA [None]
